FAERS Safety Report 15711832 (Version 1)
Quarter: 2018Q4

REPORT INFORMATION
  Report Type: Spontaneous
  Country: US (occurrence: US)
  Receive Date: 20181212
  Receipt Date: 20181212
  Transmission Date: 20190205
  Serious: Yes (Other)
  Sender: FDA-Public Use
  Company Number: US-CELGENEUS-USA-20181201095

PATIENT

DRUGS (4)
  1. ABRAXANE [Suspect]
     Active Substance: PACLITAXEL
     Indication: SQUAMOUS CELL CARCINOMA
  2. CARBOPLATIN. [Suspect]
     Active Substance: CARBOPLATIN
     Indication: PAPILLOMA VIRAL INFECTION
     Dosage: AREA UNDER THE CURVE =6
     Route: 065
  3. ABRAXANE [Suspect]
     Active Substance: PACLITAXEL
     Indication: PAPILLOMA VIRAL INFECTION
     Dosage: 100 MILLIGRAM/SQ. METER
     Route: 065
  4. CARBOPLATIN. [Suspect]
     Active Substance: CARBOPLATIN
     Indication: SQUAMOUS CELL CARCINOMA

REACTIONS (1)
  - Neutropenia [Unknown]
